FAERS Safety Report 7625904-8 (Version None)
Quarter: 2011Q3

REPORT INFORMATION
  Report Type: 
  Country: None (occurrence: None)
  Receive Date: 20110721
  Receipt Date: 20110721
  Transmission Date: 20111222
  Serious: Yes (Death)
  Sender: FDA-Public Use
  Company Number: None

PATIENT
  Sex: Female
  Weight: 119.5 kg

DRUGS (2)
  1. PRADAXA [Suspect]
     Indication: ATRIAL FIBRILLATION
     Dosage: 150MG
     Route: 048
     Dates: start: 20110705, end: 20110708
  2. LOVENOX [Concomitant]
     Dosage: 120MG
     Route: 058
     Dates: start: 20110704, end: 20110708

REACTIONS (4)
  - PELVIC HAEMATOMA [None]
  - PALPITATIONS [None]
  - DYSPNOEA [None]
  - HYPOTENSION [None]
